FAERS Safety Report 14093708 (Version 3)
Quarter: 2018Q1

REPORT INFORMATION
  Report Type: Report from Study
  Country: DE (occurrence: DE)
  Receive Date: 20171016
  Receipt Date: 20180223
  Transmission Date: 20180508
  Serious: Yes (Hospitalization, Other)
  Sender: FDA-Public Use
  Company Number: DE-BRISTOL-MYERS SQUIBB COMPANY-BMS-2017-029536

PATIENT
  Age: 45 Year
  Sex: Male

DRUGS (2)
  1. NIVOLUMAB [Suspect]
     Active Substance: NIVOLUMAB
     Indication: MALIGNANT MELANOMA
     Dosage: 65 MG, Q3WK
     Route: 042
     Dates: start: 20170309, end: 20170328
  2. IPILIMUMAB [Suspect]
     Active Substance: IPILIMUMAB
     Indication: MALIGNANT MELANOMA
     Dosage: 195 MG, Q3WK
     Route: 065
     Dates: start: 20170309, end: 20170328

REACTIONS (5)
  - Renal cyst [Unknown]
  - Pneumonitis [Recovered/Resolved]
  - Malignant neoplasm progression [Unknown]
  - Hypothyroidism [Recovered/Resolved]
  - Facial nerve disorder [Not Recovered/Not Resolved]

NARRATIVE: CASE EVENT DATE: 20170313
